FAERS Safety Report 9753959 (Version 1)
Quarter: 2013Q4

REPORT INFORMATION
  Report Type: Spontaneous
  Country: US (occurrence: US)
  Receive Date: 20131213
  Receipt Date: 20131213
  Transmission Date: 20140711
  Serious: No
  Sender: FDA-Public Use
  Company Number: US-GLAXOSMITHKLINE-A0999936A

PATIENT
  Age: 72 Year
  Sex: Female

DRUGS (2)
  1. NICORETTE [Suspect]
     Indication: EX-TOBACCO USER
     Dates: start: 20121028, end: 20121030
  2. NICORETTE NICOTINE POLACRILEX MINT LOZENGE [Suspect]
     Indication: SMOKING CESSATION THERAPY
     Route: 002

REACTIONS (4)
  - Oral discomfort [Recovered/Resolved]
  - Drug administration error [Unknown]
  - Abdominal discomfort [Unknown]
  - Motion sickness [Unknown]
